FAERS Safety Report 8282794-0 (Version None)
Quarter: 2012Q2

REPORT INFORMATION
  Report Type: 
  Country: None (occurrence: None)
  Receive Date: 20120413
  Receipt Date: 20120330
  Transmission Date: 20120825
  Serious: Yes (Other)
  Sender: FDA-Public Use
  Company Number: AR-ROCHE-GNE322366

PATIENT
  Sex: Male

DRUGS (1)
  1. LUCENTIS [Suspect]
     Indication: HAEMORRHAGE
     Dosage: 1 AMPOULE PER YEAR, LUCENTIS (NVO)
     Route: 050
     Dates: start: 20090101

REACTIONS (3)
  - RETINAL TEAR [None]
  - VISUAL ACUITY REDUCED [None]
  - DRUG INEFFECTIVE [None]
